FAERS Safety Report 13689343 (Version 1)
Quarter: 2017Q2

REPORT INFORMATION
  Report Type: Spontaneous
  Country: US (occurrence: US)
  Receive Date: 20170623
  Receipt Date: 20170623
  Transmission Date: 20170830
  Serious: No
  Sender: FDA-Public Use
  Company Number: None

PATIENT
  Age: 54 Year
  Sex: Female
  Weight: 101.24 kg

DRUGS (3)
  1. BUPERNORPHINE/NALOXONE, 8MG + 2MG X2 TO EAQUAL 12MG [Suspect]
     Active Substance: BUPRENORPHINE HYDROCHLORIDE\NALOXONE HYDROCHLORIDE
     Indication: DRUG USE DISORDER
     Route: 048
     Dates: start: 20170601, end: 20170623
  2. SUBOXONE [Concomitant]
     Active Substance: BUPRENORPHINE HYDROCHLORIDE\NALOXONE HYDROCHLORIDE
  3. BUPRENORPHINE/NALOXONE, 2MG [Suspect]
     Active Substance: BUPRENORPHINE HYDROCHLORIDE\NALOXONE HYDROCHLORIDE
     Indication: DRUG USE DISORDER
     Route: 048
     Dates: start: 20170601, end: 20170623

REACTIONS (5)
  - Nausea [None]
  - Somnolence [None]
  - Headache [None]
  - Drug use disorder [None]
  - Product substitution issue [None]

NARRATIVE: CASE EVENT DATE: 20170623
